FAERS Safety Report 4830609-2 (Version None)
Quarter: 2005Q4

REPORT INFORMATION
  Report Type: 
  Country: None (occurrence: None)
  Receive Date: 20051115
  Receipt Date: 20051109
  Transmission Date: 20060501
  Serious: Yes (Other)
  Sender: FDA-Public Use
  Company Number: FRWYE125809NOV05

PATIENT
  Age: 49 Year
  Sex: Male

DRUGS (4)
  1. EFFEXOR [Suspect]
     Indication: DEPRESSION
     Dosage: SEE IMAGE
     Route: 048
     Dates: start: 20050906, end: 20050101
  2. EFFEXOR [Suspect]
     Indication: DEPRESSION
     Dosage: SEE IMAGE
     Route: 048
     Dates: start: 20050101
  3. APROVEL (IRBESARTAN) [Concomitant]
  4. .......................... [Concomitant]

REACTIONS (6)
  - ABDOMINAL PAIN [None]
  - CONDITION AGGRAVATED [None]
  - DIARRHOEA [None]
  - HYPERHIDROSIS [None]
  - HYPERTENSION [None]
  - MYALGIA [None]
